FAERS Safety Report 14989316 (Version 2)
Quarter: 2018Q2

REPORT INFORMATION
  Report Type: Report from Study
  Country: FR (occurrence: FR)
  Receive Date: 20180608
  Receipt Date: 20180621
  Transmission Date: 20180711
  Serious: Yes (Hospitalization, Other)
  Sender: FDA-Public Use
  Company Number: FR-PFIZER INC-2018221674

PATIENT
  Age: 75 Year
  Sex: Male
  Weight: 81 kg

DRUGS (8)
  1. INLYTA [Suspect]
     Active Substance: AXITINIB
     Dosage: 2 MG, 2X/DAY CONTINUOUS
     Route: 048
     Dates: start: 20180206, end: 20180528
  2. VASELINE /00473501/ [Concomitant]
     Active Substance: PARAFFIN
     Indication: DRY SKIN
     Dosage: UNK
     Route: 003
     Dates: start: 20180306
  3. AVELUMAB [Suspect]
     Active Substance: AVELUMAB
     Indication: RENAL CELL CARCINOMA
     Dosage: 860 MG, CYCLIC EVERY 2 WEEKS
     Route: 042
     Dates: start: 20171129, end: 20180529
  4. INLYTA [Suspect]
     Active Substance: AXITINIB
     Indication: RENAL CELL CARCINOMA
     Dosage: 5 MG, 2X/DAY
     Route: 048
     Dates: start: 20171129
  5. GLYCEROL [Concomitant]
     Active Substance: GLYCERIN
     Indication: DRY SKIN
     Dosage: UNK
     Route: 003
     Dates: start: 20180306
  6. FRESUBIN /07459901/ [Concomitant]
     Active Substance: CARBOHYDRATES\FATTY ACIDS\MINERALS\PROTEIN\VITAMINS
     Indication: DECREASED APPETITE
     Dosage: 1 DF, DAILY
     Route: 048
     Dates: start: 20180220
  7. SODIUM BICARBONATE. [Concomitant]
     Active Substance: SODIUM BICARBONATE
     Indication: STOMATITIS
     Dosage: UNK, CYCLIC 6 TIMES A DAY
     Route: 002
     Dates: start: 20180103
  8. UVEDOSE [Concomitant]
     Active Substance: CHOLECALCIFEROL
     Indication: CHONDROCALCINOSIS
     Dosage: 100000 IU, CYCLIC EVERY 3 MONTHS
     Route: 048
     Dates: start: 201601

REACTIONS (1)
  - Sepsis [Recovered/Resolved]

NARRATIVE: CASE EVENT DATE: 20180529
